FAERS Safety Report 25876542 (Version 2)
Quarter: 2025Q4

REPORT INFORMATION
  Report Type: Other
  Country: EU (occurrence: EU)
  Receive Date: 20251003
  Receipt Date: 20251003
  Transmission Date: 20260118
  Serious: Yes (Death, Hospitalization, Other)
  Sender: NUVO PHARMACEUTICALS
  Company Number: EU-Nuvo Pharmaceuticals Inc-2185852

PATIENT
  Age: 3 Decade
  Sex: Male

DRUGS (14)
  1. DIAZEPAM [Suspect]
     Active Substance: DIAZEPAM
     Indication: Product use in unapproved indication
  2. PREGABALIN [Suspect]
     Active Substance: PREGABALIN
  3. NITRAZEPAM [Suspect]
     Active Substance: NITRAZEPAM
  4. CIPROFLOXACIN [Suspect]
     Active Substance: CIPROFLOXACIN
  5. SILDENAFIL [Suspect]
     Active Substance: SILDENAFIL
  6. HERBALS\TETRAHYDROCANNABINOL UNSPECIFIED [Suspect]
     Active Substance: HERBALS\TETRAHYDROCANNABINOL UNSPECIFIED
  7. OXAZEPAM [Suspect]
     Active Substance: OXAZEPAM
  8. OXYCODONE [Suspect]
     Active Substance: OXYCODONE
  9. OLANZAPINE [Suspect]
     Active Substance: OLANZAPINE
  10. 7-AMINONITRAZEPAM [Suspect]
     Active Substance: 7-AMINONITRAZEPAM
  11. ALPRAZOLAM [Suspect]
     Active Substance: ALPRAZOLAM
  12. ETONITAZEPYNE [Suspect]
     Active Substance: ETONITAZEPYNE
  13. NORDAZEPAM [Suspect]
     Active Substance: NORDAZEPAM
  14. AMPHETAMINE SULFATE [Suspect]
     Active Substance: AMPHETAMINE SULFATE

REACTIONS (7)
  - Loss of consciousness [Fatal]
  - Stertor [Fatal]
  - Irregular breathing [Fatal]
  - Toxicity to various agents [Fatal]
  - Cyanosis [Fatal]
  - Respiratory arrest [Fatal]
  - Unresponsive to stimuli [Fatal]

NARRATIVE: CASE EVENT DATE: 20211201
